FAERS Safety Report 6590986-1 (Version None)
Quarter: 2010Q1

REPORT INFORMATION
  Report Type: 
  Country: None (occurrence: None)
  Receive Date: 20100219
  Receipt Date: 20100210
  Transmission Date: 20100710
  Serious: Yes (Other)
  Sender: FDA-Public Use
  Company Number: US-ELI_LILLY_AND_COMPANY-US201002003123

PATIENT
  Sex: Female

DRUGS (3)
  1. HUMALOG MIX 75/25 [Suspect]
     Indication: DIABETES MELLITUS
     Dosage: UNK, EACH EVENING
     Dates: start: 20090401
  2. HUMALOG [Suspect]
     Indication: DIABETES MELLITUS
     Dosage: UNK, EACH EVENING
     Dates: start: 20090401
  3. HUMALOG MIX 75/25 [Suspect]
     Dosage: UNK, EACH EVENING
     Dates: start: 20000101

REACTIONS (6)
  - BLOOD GLUCOSE DECREASED [None]
  - BLOOD GLUCOSE INCREASED [None]
  - COLON CANCER [None]
  - DECREASED APPETITE [None]
  - HEART RATE INCREASED [None]
  - WRONG DRUG ADMINISTERED [None]
